FAERS Safety Report 18051358 (Version 3)
Quarter: 2020Q3

REPORT INFORMATION
  Report Type: Spontaneous
  Country: CA (occurrence: CA)
  Receive Date: 20200721
  Receipt Date: 20200831
  Transmission Date: 20201103
  Serious: Yes (Life-Threatening, Hospitalization)
  Sender: FDA-Public Use
  Company Number: CA-ASTRAZENECA-2020SE90473

PATIENT
  Age: 18024 Day
  Sex: Female
  Weight: 111.1 kg

DRUGS (36)
  1. MOMETASONE [Concomitant]
     Active Substance: MOMETASONE
     Dates: start: 20200402
  2. AQUAPHOR [Concomitant]
     Active Substance: PETROLATUM
     Dosage: 1 APPLICATION THREE TIMES DAILY
     Dates: start: 20191125
  3. ASA [Concomitant]
     Active Substance: ASPIRIN
     Dates: start: 20200522
  4. SALBUTAMOL [Concomitant]
     Active Substance: ALBUTEROL
     Dosage: 2.5 MG/ 2.5 ML SOLUTION 3?4 NEBULE DAILY FOR 30 DAYS
     Dates: start: 20200522
  5. CALCIUM [Concomitant]
     Active Substance: CALCIUM
     Dates: start: 20200522
  6. PERCOCET [Concomitant]
     Active Substance: ACETAMINOPHEN\OXYCODONE HYDROCHLORIDE
     Dosage: 5?325 MG 2 TABLET EVERY 4 HOURS AS NEEDED FOR 90 DAYS
     Route: 048
     Dates: start: 20200522
  7. TYLENOL WITH CODEINE [Concomitant]
     Active Substance: ACETAMINOPHEN\CODEINE PHOSPHATE
     Indication: COUGH
     Dosage: 3 TABLET 0?2 TABLETS FOUR TIMES DAILY AS NEEDED FOR 90 DAYS
     Dates: start: 20200522
  8. LOSEC DR [Concomitant]
     Dates: start: 20200522
  9. HYDROCHLOROTHIAZIDE. [Concomitant]
     Active Substance: HYDROCHLOROTHIAZIDE
     Route: 048
     Dates: start: 20200522
  10. MYLAN?NITRO [Concomitant]
     Dosage: 0.4 MG/DOSE SPRAY
     Dates: start: 20200522
  11. ADVAIR HFA [Concomitant]
     Active Substance: FLUTICASONE PROPIONATE\SALMETEROL XINAFOATE
     Dosage: 250?25 MCG INHALE 1 SPRAY TWO TIMES DAILY FOR 30 DAYS
     Dates: start: 20200522
  12. APO?MIRTAZAPINE [Concomitant]
     Active Substance: MIRTAZAPINE
     Dates: start: 20200522
  13. NYSTATIN. [Concomitant]
     Active Substance: NYSTATIN
     Dosage: 100,000 UNIT/ML SUSPENSION 5 ML FOUR TIMES DAILY FOR 10 DAYS
     Dates: start: 20200522
  14. CANESTEN COMBI [Concomitant]
     Dosage: 1 DAY KIT
     Dates: start: 20200227
  15. NOVORAPID [Concomitant]
     Active Substance: INSULIN ASPART
     Dosage: 25 UNIT WITH BREAKFAST 15 UNITS WITH LUNCH, 15 UNITS WITH SUPPER
     Dates: start: 20150911
  16. APO?PREDNISONE [Concomitant]
     Active Substance: PREDNISONE
     Indication: LUNG DISORDER
     Dates: start: 20200522
  17. APO?TRAZODONE [Concomitant]
     Active Substance: TRAZODONE HYDROCHLORIDE
     Dates: start: 20200522
  18. CHOLECALCIFEROL [Concomitant]
     Active Substance: CHOLECALCIFEROL
     Route: 048
     Dates: start: 20200522
  19. COMBIVENT [Concomitant]
     Active Substance: ALBUTEROL SULFATE\IPRATROPIUM BROMIDE
     Dosage: 1 INHALATION FOUR TIMES A DAY FOR 90 DAYS
     Dates: start: 20200522
  20. APIDRA [Concomitant]
     Active Substance: INSULIN GLULISINE
     Dosage: 100 UNIT/ML , THREE TIMES A DAY
     Dates: start: 20200522
  21. EPIPEN [Concomitant]
     Active Substance: EPINEPHRINE
     Dates: start: 20190325
  22. ZOPICLONE [Concomitant]
     Active Substance: ZOPICLONE
     Route: 048
  23. RAMIPRIL. [Concomitant]
     Active Substance: RAMIPRIL
     Route: 048
     Dates: start: 20200522
  24. FORXIGA [Concomitant]
     Active Substance: DAPAGLIFLOZIN
     Route: 065
  25. SALBUTAMOL HFA [Concomitant]
     Active Substance: ALBUTEROL
  26. ATORVASTATIN [Concomitant]
     Active Substance: ATORVASTATIN
     Dates: start: 20200522
  27. COLACE [Concomitant]
     Active Substance: DOCUSATE SODIUM
     Dates: start: 20200522
  28. SPIRIVA RESPIMAT [Concomitant]
     Active Substance: TIOTROPIUM BROMIDE
     Dosage: 2.5 MCG INHALATION 2 SPRAY ONCE DAILY FOR 90 DAYS
     Dates: start: 20200522
  29. CLOTRIMAZOLE. [Concomitant]
     Active Substance: CLOTRIMAZOLE
     Dosage: 1 APPLICATION THREE TIMES DAILY
     Dates: start: 20191125
  30. LANTUS [Concomitant]
     Active Substance: INSULIN GLARGINE
     Dosage: 28 UNITS
     Dates: start: 20150911
  31. INSULIN PEN [Concomitant]
     Active Substance: INSULIN NOS
     Dates: start: 20190116
  32. AMOXICILLIN/POTASSIUM CLAVULANATE [Concomitant]
     Active Substance: AMOXICILLIN\CLAVULANATE POTASSIUM
     Route: 048
     Dates: start: 20200522
  33. LANTUS SOLOSTAR [Concomitant]
     Active Substance: INSULIN GLARGINE
     Dosage: 100UNIT PER ML , CURRENTLY ON 74 UNITS OD
     Dates: start: 20200522
  34. FASENRA [Suspect]
     Active Substance: BENRALIZUMAB
     Indication: ASTHMA
     Route: 058
     Dates: start: 20190212, end: 20190313
  35. APO?NORTRIPTYLINE [Concomitant]
     Active Substance: NORTRIPTYLINE
     Dates: start: 20200522
  36. APO?PREDNISONE [Concomitant]
     Active Substance: PREDNISONE
     Indication: LUNG DISORDER
     Dates: start: 20200522

REACTIONS (3)
  - Bronchospasm [Unknown]
  - Anaphylactic reaction [Unknown]
  - Anaphylactic shock [Recovered/Resolved]

NARRATIVE: CASE EVENT DATE: 20190313
